FAERS Safety Report 18049718 (Version 2)
Quarter: 2020Q3

REPORT INFORMATION
  Report Type: Spontaneous
  Country: JP (occurrence: JP)
  Receive Date: 20200721
  Receipt Date: 20200821
  Transmission Date: 20201103
  Serious: Yes (Other)
  Sender: FDA-Public Use
  Company Number: JP-ELI_LILLY_AND_COMPANY-JP202001006849

PATIENT
  Sex: Female

DRUGS (3)
  1. PURSENNID [SENNOSIDE A+B CALCIUM] [Concomitant]
     Active Substance: SENNOSIDES A AND B
     Indication: CONSTIPATION
     Dosage: 24 MG, DAILY
     Route: 048
  2. TALTZ [Suspect]
     Active Substance: IXEKIZUMAB
     Indication: PUSTULAR PSORIASIS
     Dosage: 80 MG
     Route: 058
     Dates: start: 20171204, end: 20191227
  3. MAGMITT [Concomitant]
     Active Substance: MAGNESIUM OXIDE
     Indication: CONSTIPATION
     Dosage: 1980 MG, DAILY
     Route: 048

REACTIONS (2)
  - Abortion missed [Unknown]
  - Maternal exposure during pregnancy [Recovered/Resolved]

NARRATIVE: CASE EVENT DATE: 2020
